FAERS Safety Report 7942585-4 (Version None)
Quarter: 2011Q4

REPORT INFORMATION
  Report Type: 
  Country: None (occurrence: None)
  Receive Date: 20111128
  Receipt Date: 20111121
  Transmission Date: 20120403
  Serious: Yes (Hospitalization, Other)
  Sender: FDA-Public Use
  Company Number: GR-GLAXOSMITHKLINE-B0765238A

PATIENT
  Age: 78 Year
  Sex: Female

DRUGS (1)
  1. ARIXTRA [Suspect]
     Indication: PRODUCT USED FOR UNKNOWN INDICATION
     Dosage: 2.5MG UNKNOWN
     Route: 065

REACTIONS (3)
  - HEMIPARESIS [None]
  - NEUROLOGICAL DECOMPENSATION [None]
  - CEREBRAL HAEMORRHAGE [None]
